FAERS Safety Report 10134113 (Version 1)
Quarter: 2014Q2

REPORT INFORMATION
  Report Type: Spontaneous
  Country: US (occurrence: US)
  Receive Date: 20140428
  Receipt Date: 20140428
  Transmission Date: 20141212
  Serious: No
  Sender: FDA-Public Use
  Company Number: US-SANOFI-AVENTIS-2013SA071668

PATIENT
  Age: 45 Year
  Sex: Female

DRUGS (2)
  1. ALLEGRA [Suspect]
     Indication: COUGH
     Route: 065
  2. MUCINEX [Concomitant]
     Indication: COUGH

REACTIONS (1)
  - Drug ineffective [Unknown]
